FAERS Safety Report 15576031 (Version 1)
Quarter: 2018Q4

REPORT INFORMATION
  Report Type: Spontaneous
  Country: PT (occurrence: PT)
  Receive Date: 20181101
  Receipt Date: 20181101
  Transmission Date: 20190205
  Serious: Yes (Other)
  Sender: FDA-Public Use
  Company Number: PT-TEVA-2018-PT-970988

PATIENT
  Age: 57 Year
  Sex: Female

DRUGS (3)
  1. ESOMEPRAZOLE. [Concomitant]
     Active Substance: ESOMEPRAZOLE MAGNESIUM
     Route: 048
     Dates: start: 20180923
  2. CIPAMOX [Suspect]
     Active Substance: AMOXICILLIN
     Indication: HELICOBACTER TEST POSITIVE
     Dosage: 2000 MILLIGRAM DAILY;
     Route: 048
     Dates: start: 20180923, end: 20181003
  3. CLARITHROMYCIN. [Suspect]
     Active Substance: CLARITHROMYCIN
     Indication: HELICOBACTER TEST POSITIVE
     Dosage: 1000 MILLIGRAM DAILY;
     Route: 048
     Dates: start: 20180923, end: 20181003

REACTIONS (4)
  - Oropharyngeal discomfort [Recovered/Resolved]
  - Tongue coated [Recovered/Resolved]
  - Tongue pruritus [Recovered/Resolved]
  - Tongue discolouration [Recovered/Resolved]

NARRATIVE: CASE EVENT DATE: 20180930
